APPROVED DRUG PRODUCT: NATURAL ESTROGENIC SUBSTANCE-ESTRONE
Active Ingredient: ESTRONE
Strength: 2MG/ML
Dosage Form/Route: INJECTABLE;INJECTION
Application: A085237 | Product #001
Applicant: WATSON LABORATORIES INC
Approved: Nov 23, 1982 | RLD: No | RS: No | Type: DISCN